FAERS Safety Report 10876812 (Version 1)
Quarter: 2015Q1

REPORT INFORMATION
  Report Type: Spontaneous
  Country: US (occurrence: US)
  Receive Date: 20150302
  Receipt Date: 20150302
  Transmission Date: 20150721
  Serious: Yes (Other)
  Sender: FDA-Public Use
  Company Number: US-PAR PHARMACEUTICAL, INC-2015SCPR010395

PATIENT

DRUGS (1)
  1. PITOCIN [Suspect]
     Active Substance: OXYTOCIN
     Indication: ANALGESIC THERAPY
     Dosage: 150 MCG, SINGLE
     Route: 037

REACTIONS (6)
  - Bradycardia [Recovered/Resolved]
  - Hypoaesthesia [Recovered/Resolved]
  - Paraesthesia [Recovered/Resolved]
  - Off label use [Unknown]
  - Hypotension [Recovered/Resolved]
  - Electrocardiogram P wave abnormal [Recovered/Resolved]
